FAERS Safety Report 4712503-0 (Version None)
Quarter: 2005Q3

REPORT INFORMATION
  Report Type: 
  Country: None (occurrence: None)
  Receive Date: 20050711
  Receipt Date: 20050705
  Transmission Date: 20060218
  Serious: Yes (Hospitalization)
  Sender: FDA-Public Use
  Company Number: USA-2005-0020599

PATIENT
  Sex: Female

DRUGS (4)
  1. SENOKOT [Suspect]
     Dosage: 3 TABLET, NOCTE, ORAL
     Route: 048
  2. CARDIZEM [Concomitant]
  3. CARDURA [Concomitant]
  4. ATENOLOL [Concomitant]

REACTIONS (5)
  - ASTHENIA [None]
  - BLOOD PRESSURE DECREASED [None]
  - DIARRHOEA [None]
  - DYSSTASIA [None]
  - FALL [None]
